FAERS Safety Report 6647912-6 (Version None)
Quarter: 2010Q1

REPORT INFORMATION
  Report Type: 
  Country: None (occurrence: None)
  Receive Date: 20100318
  Receipt Date: 20100303
  Transmission Date: 20100710
  Serious: Yes (Hospitalization, Other)
  Sender: FDA-Public Use
  Company Number: 220016J10GBR

PATIENT
  Age: 3 Year
  Sex: Female
  Weight: 12.8 kg

DRUGS (10)
  1. SAIZEN [Suspect]
     Indication: DRUG USE FOR UNKNOWN INDICATION
     Dosage: 0.7, SUBCUTANEOUS
     Route: 058
     Dates: start: 20100101, end: 20100127
  2. SAIZEN [Suspect]
     Indication: DRUG USE FOR UNKNOWN INDICATION
     Dosage: 0.7, SUBCUTANEOUS
     Route: 058
     Dates: start: 20100118, end: 20100127
  3. CYCLOSPORINE [Concomitant]
  4. SODIUM BICARBONATE IN PLASTIC CONTAINER [Concomitant]
  5. PHOSPHATE (PHOSPHATE) [Concomitant]
  6. CALCIUM SANDOZ (CALCIUM) [Concomitant]
  7. MAGNESIUM (MAGNESIUM) [Concomitant]
  8. AUGMENTIN DUO (AMOXICILLIN W/CLAVULANATE POTASSIUM) [Concomitant]
  9. ONE ALPHA CALCIDOL (ALFACALCIDOL) [Concomitant]
  10. KETOVITE (KETOVITE) [Concomitant]

REACTIONS (5)
  - DIARRHOEA [None]
  - EAR PRURITUS [None]
  - PNEUMONIA [None]
  - SWELLING FACE [None]
  - VOMITING [None]
